FAERS Safety Report 11100643 (Version 2)
Quarter: 2015Q3

REPORT INFORMATION
  Report Type: Spontaneous
  Country: AU (occurrence: AU)
  Receive Date: 20150508
  Receipt Date: 20150706
  Transmission Date: 20151125
  Serious: Yes (Other)
  Sender: FDA-Public Use
  Company Number: AU-AMGEN-AUSSP2015043749

PATIENT
  Age: 68 Year
  Sex: Female

DRUGS (2)
  1. PROLIA [Suspect]
     Active Substance: DENOSUMAB
     Indication: HYPERPARATHYROIDISM SECONDARY
     Dosage: 60 MG, UNK
     Route: 058
     Dates: start: 201406
  2. MIMPARA [Suspect]
     Active Substance: CINACALCET HYDROCHLORIDE
     Indication: HYPERPARATHYROIDISM SECONDARY
     Route: 065

REACTIONS (6)
  - Drug intolerance [Unknown]
  - Off label use [Unknown]
  - Dialysis [Unknown]
  - Parathyroid tumour benign [Unknown]
  - Hypocalcaemia [Unknown]
  - Inappropriate antidiuretic hormone secretion [Unknown]
